FAERS Safety Report 8906957 (Version 1)
Quarter: 2012Q4

REPORT INFORMATION
  Report Type: 
  Country: FR (occurrence: FR)
  Receive Date: 20121114
  Receipt Date: 20121114
  Transmission Date: 20130627
  Serious: Yes (Hospitalization)
  Sender: FDA-Public Use
  Company Number: FR-PFIZER INC-2012280545

PATIENT
  Sex: Male

DRUGS (1)
  1. SUTENT [Suspect]
     Indication: PANCREATIC NEUROENDOCRINE TUMOR
     Dosage: 37.5 mg, 1x/day
     Dates: end: 201206

REACTIONS (1)
  - Haemolytic uraemic syndrome [Recovered/Resolved]
